FAERS Safety Report 10037481 (Version 1)
Quarter: 2014Q1

REPORT INFORMATION
  Report Type: Spontaneous
  Country: US (occurrence: None)
  Receive Date: 20140306
  Receipt Date: 20140306
  Transmission Date: 20141002
  Serious: Yes (Hospitalization, Other)
  Sender: FDA-Public Use
  Company Number: 163-21880-13083329

PATIENT
  Age: 83 Year
  Sex: Female

DRUGS (4)
  1. REVLIMID [Suspect]
     Indication: PLASMA CELL MYELOMA
     Dosage: 1 IN 1 D
     Route: 048
     Dates: start: 20120605
  2. ASPIRIN (ACETYLSALICYLIC ACID) [Concomitant]
  3. AMIODARONE HCL (AMIODARONE HYDROCHLORIDE) [Concomitant]
  4. POTASSIUM CHLORIDE (POTASSIUM CHLORIDE) [Concomitant]

REACTIONS (4)
  - Hypokalaemia [None]
  - Dehydration [None]
  - Renal failure [None]
  - Diarrhoea [None]
